FAERS Safety Report 7387161-X (Version None)
Quarter: 2011Q1

REPORT INFORMATION
  Report Type: 
  Country: None (occurrence: None)
  Receive Date: 20110331
  Receipt Date: 20110323
  Transmission Date: 20110831
  Serious: Yes (Hospitalization)
  Sender: FDA-Public Use
  Company Number: A0920735A

PATIENT
  Age: 50 Year
  Sex: Female

DRUGS (3)
  1. ALBUTEROL [Suspect]
     Route: 065
  2. UNSPECIFIED MEDICATION [Concomitant]
  3. ALPRAZOLAM [Suspect]
     Indication: HEART RATE INCREASED
     Dosage: 1MG UNKNOWN
     Route: 065

REACTIONS (4)
  - NEPHROLITHIASIS [None]
  - VIOLENCE-RELATED SYMPTOM [None]
  - MENTAL DISORDER [None]
  - HEART RATE INCREASED [None]
